FAERS Safety Report 5621837-7 (Version None)
Quarter: 2008Q1

REPORT INFORMATION
  Report Type: 
  Country: None (occurrence: None)
  Receive Date: 20080114
  Receipt Date: 20070620
  Transmission Date: 20080703
  Serious: Yes (Hospitalization)
  Sender: FDA-Public Use
  Company Number: A03200704131

PATIENT
  Age: 78 Year
  Sex: Female

DRUGS (10)
  1. PLAVIX [Suspect]
     Indication: CORONARY ARTERY BYPASS
     Dosage: 75 MG QD - ORAL
     Route: 048
     Dates: start: 20070330
  2. ESOMEPRAZOLE [Concomitant]
  3. LEVOTHYROXINE SODIUM [Concomitant]
  4. ACETYLSALICYLIC ACID SRT [Concomitant]
  5. METOPROLOL TARTRATE [Concomitant]
  6. FUROSEMIDE [Concomitant]
  7. POTASSIUM CHLORIDE [Concomitant]
  8. ASCORBIC ACID [Concomitant]
  9. FOLIC ACID [Concomitant]
  10. SIMVASTATIN [Concomitant]

REACTIONS (3)
  - CHEST DISCOMFORT [None]
  - CONTUSION [None]
  - PAIN [None]
